FAERS Safety Report 18128225 (Version 1)
Quarter: 2020Q3

REPORT INFORMATION
  Report Type: Spontaneous
  Country: US (occurrence: US)
  Receive Date: 20200807
  Receipt Date: 20200807
  Transmission Date: 20201103
  Serious: Yes (Other)
  Sender: FDA-Public Use
  Company Number: None

PATIENT
  Age: 33 Year
  Sex: Female
  Weight: 79.4 kg

DRUGS (23)
  1. ALBUTEROL. [Concomitant]
     Active Substance: ALBUTEROL
     Dates: start: 20200802, end: 20200807
  2. ALPRAZOLAM. [Concomitant]
     Active Substance: ALPRAZOLAM
     Dates: start: 20200730, end: 20200803
  3. ASCORBIC ACID. [Concomitant]
     Active Substance: ASCORBIC ACID
     Dates: start: 20200803, end: 20200807
  4. HEPARIN [Concomitant]
     Active Substance: HEPARIN SODIUM
     Dates: start: 20200729, end: 20200807
  5. METFORMIN [Concomitant]
     Active Substance: METFORMIN HYDROCHLORIDE
     Dates: start: 20200801, end: 20200802
  6. ASPIRIN. [Concomitant]
     Active Substance: ASPIRIN
     Dates: start: 20200730, end: 20200807
  7. FAMOTIDINE. [Concomitant]
     Active Substance: FAMOTIDINE
     Dates: start: 20200803, end: 20200807
  8. LISINOPRIL. [Concomitant]
     Active Substance: LISINOPRIL
     Dates: start: 20200730, end: 20200807
  9. ZINC GLUCONATE [Concomitant]
     Active Substance: ZINC GLUCONATE
     Dates: start: 20200803, end: 20200807
  10. REMDESIVIR. [Suspect]
     Active Substance: REMDESIVIR
     Indication: COVID-19
     Route: 042
     Dates: start: 20200802, end: 20200803
  11. PANTOPRAZOLE [Concomitant]
     Active Substance: PANTOPRAZOLE
     Dates: start: 20200729, end: 20200802
  12. REMDESIVIR. [Suspect]
     Active Substance: REMDESIVIR
     Indication: COVID-19
     Dosage: ?          OTHER FREQUENCY:ONCE;?
     Route: 042
     Dates: start: 20200801, end: 20200801
  13. INSULIN GLARGINE [Concomitant]
     Active Substance: INSULIN GLARGINE
     Dates: start: 20200730, end: 20200807
  14. INSULIN LISPRO [Concomitant]
     Active Substance: INSULIN LISPRO
     Dates: start: 20200729, end: 20200807
  15. DEXAMETHASONE. [Concomitant]
     Active Substance: DEXAMETHASONE
     Dates: start: 20200801, end: 20200802
  16. CHOLECALCIFEROL [Concomitant]
     Active Substance: CHOLECALCIFEROL
     Dates: start: 20200803, end: 20200807
  17. AZITHROMYCIN ANHYDROUS. [Concomitant]
     Active Substance: AZITHROMYCIN ANHYDROUS
     Dates: start: 20200729, end: 20200802
  18. METHYLPREDNISOLONE. [Concomitant]
     Active Substance: METHYLPREDNISOLONE
     Dates: start: 20200730, end: 20200807
  19. FLUTICASONE. [Concomitant]
     Active Substance: FLUTICASONE
     Dates: start: 20200730, end: 20200807
  20. IVERMECTIN. [Concomitant]
     Active Substance: IVERMECTIN
     Dates: start: 20200803, end: 20200803
  21. ATORVASTATIN [Concomitant]
     Active Substance: ATORVASTATIN
     Dates: start: 20200729, end: 20200807
  22. THIAMIN [Concomitant]
     Active Substance: THIAMINE
     Dates: start: 20200803, end: 20200807
  23. CEFTRIAXONE. [Concomitant]
     Active Substance: CEFTRIAXONE
     Dates: start: 20200729, end: 20200802

REACTIONS (6)
  - Alanine aminotransferase increased [None]
  - Blood creatinine increased [None]
  - Inflammatory marker increased [None]
  - Diabetes mellitus [None]
  - COVID-19 pneumonia [None]
  - SARS-CoV-2 test positive [None]

NARRATIVE: CASE EVENT DATE: 20200804
